FAERS Safety Report 20415562 (Version 6)
Quarter: 2022Q2

REPORT INFORMATION
  Report Type: Report from Study
  Country: FR (occurrence: FR)
  Receive Date: 20220202
  Receipt Date: 20220617
  Transmission Date: 20220721
  Serious: Yes (Hospitalization)
  Sender: FDA-Public Use
  Company Number: FR-NOVARTISPH-NVSC2022FR018053

PATIENT
  Age: 57 Year
  Sex: Female
  Weight: 78 kg

DRUGS (2)
  1. DABRAFENIB [Suspect]
     Active Substance: DABRAFENIB
     Indication: Metastatic malignant melanoma
     Dosage: 300 MG
     Route: 048
     Dates: start: 20210507, end: 20211001
  2. TRAMETINIB [Suspect]
     Active Substance: TRAMETINIB
     Indication: Metastatic malignant melanoma
     Dosage: 2 MG
     Route: 048
     Dates: start: 20210507, end: 20211001

REACTIONS (4)
  - Skin bacterial infection [Recovered/Resolved with Sequelae]
  - Rash pustular [Recovered/Resolved with Sequelae]
  - Photosensitivity reaction [Recovered/Resolved with Sequelae]
  - Paronychia [Not Recovered/Not Resolved]

NARRATIVE: CASE EVENT DATE: 20210526
